FAERS Safety Report 6456899-0 (Version None)
Quarter: 2009Q4

REPORT INFORMATION
  Report Type: 
  Country: None (occurrence: None)
  Receive Date: 20091125
  Receipt Date: 20091114
  Transmission Date: 20100525
  Serious: Yes (Death)
  Sender: FDA-Public Use
  Company Number: JP-BAXTER-2009BH017634

PATIENT
  Age: 42 Year
  Sex: Male

DRUGS (2)
  1. EXTRANEAL [Suspect]
     Indication: PERITONEAL DIALYSIS
     Route: 033
     Dates: start: 20070501, end: 20091114
  2. DIANEAL 137 W/ DEXTROSE 2.5% IN PLASTIC CONTAINER [Suspect]
     Indication: PERITONEAL DIALYSIS
     Route: 033
     Dates: start: 20070501, end: 20091114

REACTIONS (1)
  - CARDIAC FAILURE [None]
